FAERS Safety Report 7933116-3 (Version None)
Quarter: 2011Q4

REPORT INFORMATION
  Report Type: 
  Country: None (occurrence: None)
  Receive Date: 20111121
  Receipt Date: 20111121
  Transmission Date: 20120403
  Serious: Yes (Life-Threatening)
  Sender: FDA-Public Use
  Company Number: None

PATIENT
  Sex: Female
  Weight: 82.5547 kg

DRUGS (2)
  1. PEGASYS [Suspect]
     Indication: HEPATITIS C
     Dosage: INJECT 0.5ML (180MCG)
     Dates: start: 20110815
  2. RIBASPHERE [Suspect]
     Dosage: 1 TABLET BY MOUTH BID
     Route: 048
     Dates: start: 20110815

REACTIONS (3)
  - DYSPNOEA [None]
  - HAEMOPTYSIS [None]
  - CHEST DISCOMFORT [None]
